FAERS Safety Report 5714772-7 (Version None)
Quarter: 2008Q2

REPORT INFORMATION
  Report Type: 
  Country: None (occurrence: None)
  Receive Date: 20080423
  Receipt Date: 20080331
  Transmission Date: 20081010
  Serious: Yes (Hospitalization)
  Sender: FDA-Public Use
  Company Number: JP-ASTRAZENECA-2008SE02059

PATIENT
  Age: 29092 Day
  Sex: Female

DRUGS (5)
  1. BLOPRESS TABLETS 4 [Suspect]
     Indication: CARDIAC FAILURE CHRONIC
     Route: 048
     Dates: start: 20060608
  2. DIGOSIN [Suspect]
     Indication: CARDIAC FAILURE CHRONIC
     Route: 048
  3. LASIX [Suspect]
     Indication: CARDIAC FAILURE CHRONIC
     Route: 048
  4. ASPIRIN [Suspect]
     Indication: CARDIAC FAILURE CHRONIC
     Route: 048
  5. NORVASC [Suspect]
     Indication: HYPERTENSION
     Route: 048

REACTIONS (2)
  - CAROTID ARTERY OCCLUSION [None]
  - THROMBOTIC STROKE [None]
